FAERS Safety Report 22145434 (Version 1)
Quarter: 2023Q1

REPORT INFORMATION
  Report Type: Other
  Country: US (occurrence: None)
  Receive Date: 20230328
  Receipt Date: 20230328
  Transmission Date: 20230418
  Serious: Yes (Hospitalization)
  Sender: FDA-Public Use
  Company Number: US-ROCHE-2709115

PATIENT
  Age: 59 Year
  Sex: Male
  Weight: 97.610 kg

DRUGS (1)
  1. CELLCEPT [Suspect]
     Active Substance: MYCOPHENOLATE MOFETIL
     Indication: Kidney transplant rejection
     Dosage: 1 CAPSULE BID
     Route: 048

REACTIONS (6)
  - Off label use [Unknown]
  - Illness [Unknown]
  - COVID-19 [Unknown]
  - Insomnia [Unknown]
  - Influenza [Recovering/Resolving]
  - Respiratory failure [Recovering/Resolving]
